FAERS Safety Report 7829908-1 (Version None)
Quarter: 2011Q4

REPORT INFORMATION
  Report Type: 
  Country: None (occurrence: None)
  Receive Date: 20111021
  Receipt Date: 20111002
  Transmission Date: 20120403
  Serious: Yes (Other)
  Sender: FDA-Public Use
  Company Number: BR-BAYER-2011-004877

PATIENT
  Age: 32 Year
  Sex: Female
  Weight: 63 kg

DRUGS (1)
  1. MIRENA [Suspect]
     Indication: CONTRACEPTION
     Dosage: 20 MCG/24HR, CONTINUOUS
     Route: 015
     Dates: start: 20101201

REACTIONS (2)
  - CAESAREAN SECTION [None]
  - PREGNANCY WITH CONTRACEPTIVE DEVICE [None]
